FAERS Safety Report 5380475-4 (Version None)
Quarter: 2007Q3

REPORT INFORMATION
  Report Type: 
  Country: None (occurrence: None)
  Receive Date: 20070706
  Receipt Date: 20070531
  Transmission Date: 20080115
  Serious: No
  Sender: FDA-Public Use
  Company Number: A0653716A

PATIENT
  Age: 56 Year
  Sex: Female

DRUGS (13)
  1. TYKERB [Suspect]
     Indication: BREAST CANCER
     Dosage: 5TAB PER DAY
     Route: 048
     Dates: start: 20070401
  2. XELODA [Concomitant]
  3. OXYCONTIN [Concomitant]
  4. OXYCODONE HCL [Concomitant]
  5. ZOLOFT [Concomitant]
  6. SENNA [Concomitant]
  7. STOOL SOFTENER [Concomitant]
  8. COMPAZINE [Concomitant]
  9. LORAZEPAM [Concomitant]
  10. AMBIEN [Concomitant]
  11. MAXZIDE [Concomitant]
  12. SOMA [Concomitant]
  13. COLPERMIN [Concomitant]

REACTIONS (7)
  - DEPRESSION [None]
  - DIARRHOEA [None]
  - DRY SKIN [None]
  - FEELING ABNORMAL [None]
  - HYPOAESTHESIA [None]
  - NAUSEA [None]
  - VOMITING [None]
